FAERS Safety Report 9145801 (Version 2)
Quarter: 2013Q1

REPORT INFORMATION
  Report Type: Spontaneous
  Country: GB (occurrence: GB)
  Receive Date: 20130307
  Receipt Date: 20130322
  Transmission Date: 20140127
  Serious: Yes (Hospitalization, Other)
  Sender: FDA-Public Use
  Company Number: PHFR2012GB003252

PATIENT
  Sex: Male

DRUGS (16)
  1. CLOZARIL [Suspect]
     Indication: PSYCHOTIC DISORDER
     Dosage: UNK
     Dates: start: 20120504
  2. CLOZARIL [Suspect]
     Dosage: 350 MG, UNK
     Route: 048
     Dates: start: 20120524
  3. MIRTAZAPINE [Concomitant]
     Dosage: 45 MG, DAILY
     Route: 048
  4. ZOLPIDEM [Concomitant]
     Dosage: 10 MG, DAILY
     Route: 048
     Dates: start: 20120427
  5. FENTANYL [Concomitant]
     Indication: PAIN
     Dosage: 75 UG, DAILY
     Route: 061
     Dates: start: 20120430
  6. DIAZEPAM [Concomitant]
     Dosage: 10 MG, DAILY
     Route: 048
     Dates: start: 20120127
  7. PROCYCLIDINE [Concomitant]
     Dosage: 5 MG, TID
     Route: 048
     Dates: start: 20120524
  8. CO-CODAMOL [Concomitant]
     Indication: PAIN
     Route: 048
     Dates: start: 20120427
  9. LISINOPRIL [Concomitant]
     Indication: HYPERTENSION
     Dosage: 20 MG, BID
     Route: 048
     Dates: start: 20120427
  10. ATENOLOL [Concomitant]
     Indication: HYPERTENSION
     Dosage: 50 MG, DAILY
     Route: 048
     Dates: start: 20120427
  11. OMEPRAZOLE [Concomitant]
     Dosage: 40 MG/DAY
     Route: 048
     Dates: start: 20120427
  12. SIMVASTATIN [Concomitant]
     Dosage: 20 MG/DAY
     Route: 048
     Dates: start: 20120427
  13. FOLIC ACID [Concomitant]
     Dosage: 5 MG, DAILY
     Dates: start: 20120427
  14. FERROUS SULPHATE [Concomitant]
     Dosage: 600 MG/DAY
     Route: 048
     Dates: start: 20120603
  15. AMLODIPINE [Concomitant]
     Dosage: 10 MG, DAILY
     Dates: start: 20120504
  16. SODIUM VALPORATE MR [Concomitant]
     Dosage: 300 MG, BID
     Route: 048
     Dates: start: 20120227

REACTIONS (3)
  - Neutrophil count increased [Unknown]
  - Haemoglobin decreased [Not Recovered/Not Resolved]
  - White blood cell count increased [Unknown]
